FAERS Safety Report 6011754-5 (Version None)
Quarter: 2008Q4

REPORT INFORMATION
  Report Type: 
  Country: None (occurrence: None)
  Receive Date: 20081218
  Receipt Date: 20080207
  Transmission Date: 20090506
  Serious: No
  Sender: FDA-Public Use
  Company Number: US-ABBOTT-08P-163-0437335-00

PATIENT
  Sex: Female
  Weight: 70.37 kg

DRUGS (2)
  1. MERIDIA [Suspect]
     Indication: WEIGHT CONTROL
     Route: 048
     Dates: start: 20070701
  2. MERIDIA [Suspect]

REACTIONS (3)
  - ANXIETY [None]
  - HYPERPHAGIA [None]
  - WEIGHT INCREASED [None]
